FAERS Safety Report 6234890-7 (Version None)
Quarter: 2009Q2

REPORT INFORMATION
  Report Type: 
  Country: None (occurrence: None)
  Receive Date: 20090618
  Receipt Date: 20090610
  Transmission Date: 20091009
  Serious: Yes (Death)
  Sender: FDA-Public Use
  Company Number: US-PFIZER INC-2009199313

PATIENT
  Sex: Male
  Weight: 84.807 kg

DRUGS (1)
  1. SUTENT [Suspect]
     Dosage: 50 MG, UNK
     Route: 048
     Dates: start: 20071001, end: 20081106

REACTIONS (2)
  - DISEASE PROGRESSION [None]
  - RENAL CANCER [None]
